FAERS Safety Report 16728517 (Version 1)
Quarter: 2019Q3

REPORT INFORMATION
  Report Type: Spontaneous
  Country: PL (occurrence: PL)
  Receive Date: 20190822
  Receipt Date: 20190822
  Transmission Date: 20191005
  Serious: Yes (Hospitalization)
  Sender: FDA-Public Use
  Company Number: PL-REGENERON PHARMACEUTICALS, INC.-2019-48625

PATIENT

DRUGS (1)
  1. EYLEA [Suspect]
     Active Substance: AFLIBERCEPT
     Indication: MACULAR DEGENERATION
     Dosage: 2 MG
     Route: 031

REACTIONS (6)
  - Eye pain [Recovering/Resolving]
  - Corneal opacity [Recovering/Resolving]
  - Blindness [Recovering/Resolving]
  - Visual impairment [Recovering/Resolving]
  - Eye inflammation [Recovering/Resolving]
  - Endophthalmitis [Recovering/Resolving]

NARRATIVE: CASE EVENT DATE: 20160521
